FAERS Safety Report 10357454 (Version 1)
Quarter: 2014Q3

REPORT INFORMATION
  Report Type: Spontaneous
  Country: BR (occurrence: BR)
  Receive Date: 20140801
  Receipt Date: 20140801
  Transmission Date: 20150326
  Serious: Yes (Other)
  Sender: FDA-Public Use
  Company Number: BR-PFIZER INC-2014213260

PATIENT
  Age: 58 Year
  Sex: Female
  Weight: 72 kg

DRUGS (10)
  1. PRISTIQ EXTENDED RELEASE [Suspect]
     Active Substance: DESVENLAFAXINE SUCCINATE
     Indication: DEPRESSION
     Dosage: UNK
  2. LEXOTAN [Suspect]
     Active Substance: BROMAZEPAM
     Dosage: UNK
  3. LEXAPRO [Suspect]
     Active Substance: ESCITALOPRAM OXALATE
     Dosage: UNK
  4. FRONTAL [Suspect]
     Active Substance: ALPRAZOLAM
     Indication: DEPRESSION
     Dosage: UNK
  5. RIVOTRIL [Suspect]
     Active Substance: CLONAZEPAM
     Dosage: UNK
  6. DONAREN [Suspect]
     Active Substance: TRAZODONE HYDROCHLORIDE
     Dosage: UNK
  7. FRONTAL XR [Suspect]
     Active Substance: ALPRAZOLAM
     Indication: DEPRESSION
     Dosage: UNK
  8. EFFEXOR XR [Suspect]
     Active Substance: VENLAFAXINE HYDROCHLORIDE
     Indication: DEPRESSION
     Dosage: UNK
     Dates: start: 2009
  9. PROZAC [Suspect]
     Active Substance: FLUOXETINE HYDROCHLORIDE
     Dosage: UNK
  10. CYMBALTA [Suspect]
     Active Substance: DULOXETINE HYDROCHLORIDE
     Dosage: UNK

REACTIONS (10)
  - Memory impairment [Unknown]
  - Dysstasia [Unknown]
  - Dizziness [Unknown]
  - Ear pain [Unknown]
  - Drug ineffective [Unknown]
  - Coordination abnormal [Unknown]
  - Depression [Unknown]
  - Blood pressure abnormal [Unknown]
  - Major depression [Unknown]
  - Gait disturbance [Unknown]
